FAERS Safety Report 16370577 (Version 2)
Quarter: 2019Q2

REPORT INFORMATION
  Report Type: Spontaneous
  Country: FR (occurrence: FR)
  Receive Date: 20190530
  Receipt Date: 20190611
  Transmission Date: 20190711
  Serious: Yes (Other)
  Sender: FDA-Public Use
  Company Number: FR-TEVA-2019-FR-1057394

PATIENT
  Sex: Female

DRUGS (1)
  1. NAPROXEN. [Suspect]
     Active Substance: NAPROXEN
     Indication: MENISCUS INJURY
     Dosage: FOR THREE DAYS
     Route: 065
     Dates: start: 201707

REACTIONS (6)
  - Septic shock [Recovered/Resolved]
  - Abdominal pain upper [Recovered/Resolved]
  - Blood test abnormal [Recovered/Resolved]
  - Pyrexia [Recovered/Resolved]
  - Gastric ulcer [Recovered/Resolved]
  - Weight decreased [Recovered/Resolved]
